FAERS Safety Report 6709019-9 (Version None)
Quarter: 2010Q2

REPORT INFORMATION
  Report Type: 
  Country: None (occurrence: None)
  Receive Date: 20100503
  Receipt Date: 20100503
  Transmission Date: 20101027
  Serious: Yes (Death, Hospitalization)
  Sender: FDA-Public Use
  Company Number: None

PATIENT
  Age: 26 Year

DRUGS (1)
  1. DICLOFENAC SODIUM [Suspect]
     Dosage: 225 MG DAILY ORAL 047
     Route: 048

REACTIONS (9)
  - ABDOMINAL PAIN [None]
  - COAGULOPATHY [None]
  - HEADACHE [None]
  - JAUNDICE [None]
  - LIVER TRANSPLANT [None]
  - MENTAL STATUS CHANGES [None]
  - NAUSEA [None]
  - RASH [None]
  - TRANSPLANT FAILURE [None]
